FAERS Safety Report 15967002 (Version 1)
Quarter: 2019Q1

REPORT INFORMATION
  Report Type: Spontaneous
  Country: IL (occurrence: IL)
  Receive Date: 20190215
  Receipt Date: 20190215
  Transmission Date: 20190418
  Serious: Yes (Hospitalization)
  Sender: FDA-Public Use
  Company Number: IL-ASTRAZENECA-2019SE26098

PATIENT
  Age: 1 Year
  Sex: Female

DRUGS (2)
  1. SYNAGIS [Suspect]
     Active Substance: PALIVIZUMAB
     Indication: ANTIVIRAL PROPHYLAXIS
     Dosage: 59.0MG UNKNOWN
     Route: 030
     Dates: start: 20190114, end: 20190114
  2. SYNAGIS [Suspect]
     Active Substance: PALIVIZUMAB
     Indication: ANTIVIRAL PROPHYLAXIS
     Dosage: 53.0MG UNKNOWN
     Route: 030
     Dates: start: 20181217, end: 20181217

REACTIONS (3)
  - Respiratory syncytial virus infection [Recovered/Resolved]
  - Dyspnoea [Recovered/Resolved]
  - Oxygen saturation decreased [Recovered/Resolved]

NARRATIVE: CASE EVENT DATE: 2019
